FAERS Safety Report 8355072-9 (Version None)
Quarter: 2012Q2

REPORT INFORMATION
  Report Type: 
  Country: None (occurrence: None)
  Receive Date: 20120511
  Receipt Date: 20120430
  Transmission Date: 20120825
  Serious: Yes (Other)
  Sender: FDA-Public Use
  Company Number: FR-ELI_LILLY_AND_COMPANY-FR201203000196

PATIENT
  Sex: Male
  Weight: 82 kg

DRUGS (5)
  1. ALIMTA [Suspect]
     Indication: LUNG ADENOCARCINOMA
     Dosage: 992 MG, Q 3 WEEKS
     Route: 042
     Dates: start: 20110525, end: 20120126
  2. CISPLATIN [Concomitant]
     Indication: LUNG ADENOCARCINOMA
     Dosage: 75 MG/M2, UNK
     Route: 042
     Dates: start: 20110525, end: 20110726
  3. DEXAMETHASONE [Concomitant]
     Indication: PREMEDICATION
     Dosage: 4 MG, BID
  4. VITAMIN B-12 [Concomitant]
     Indication: PREMEDICATION
     Dosage: UNK, Q 9WEEKS
  5. FOLIC ACID [Concomitant]
     Indication: PREMEDICATION

REACTIONS (1)
  - PANNICULITIS [None]
